FAERS Safety Report 4410815-1 (Version None)
Quarter: 2004Q3

REPORT INFORMATION
  Report Type: 
  Country: None (occurrence: None)
  Receive Date: 20040729
  Receipt Date: 20040720
  Transmission Date: 20050211
  Serious: Yes (Hospitalization)
  Sender: FDA-Public Use
  Company Number: FR-MERCK-0407FRA00058

PATIENT
  Age: 68 Year
  Sex: Male
  Weight: 83 kg

DRUGS (7)
  1. AMPHOTERICIN B [Concomitant]
     Indication: LUNG ABSCESS
     Route: 042
     Dates: start: 20040602, end: 20040622
  2. CILASTATIN SODIUM AND IMIPENEM [Suspect]
     Indication: LUNG ABSCESS
     Route: 042
     Dates: start: 20040602, end: 20040622
  3. FOSFOMYCIN CALCIUM [Suspect]
     Indication: LUNG ABSCESS
     Route: 042
     Dates: start: 20040616, end: 20040622
  4. PIPERACILLIN SODIUM AND TAZOBACTAM SODIUM [Concomitant]
     Indication: LUNG ABSCESS
     Route: 042
     Dates: start: 20040528, end: 20040601
  5. ZOCOR [Suspect]
     Indication: HYPERCHOLESTEROLAEMIA
     Route: 048
     Dates: start: 20040130, end: 20040512
  6. VANCOMYCIN [Concomitant]
     Indication: LUNG ABSCESS
     Route: 042
     Dates: start: 20040528, end: 20040622
  7. VORICONAZOLE [Suspect]
     Indication: LUNG ABSCESS
     Route: 048
     Dates: start: 20040528, end: 20040622

REACTIONS (6)
  - FUNGAL INFECTION [None]
  - HEPATITIS [None]
  - PNEUMONITIS [None]
  - PULMONARY EMBOLISM [None]
  - PULMONARY FIBROSIS [None]
  - STAPHYLOCOCCAL INFECTION [None]
